FAERS Safety Report 5430755-9 (Version None)
Quarter: 2007Q3

REPORT INFORMATION
  Report Type: 
  Country: None (occurrence: None)
  Receive Date: 20070830
  Receipt Date: 20061110
  Transmission Date: 20080115
  Serious: No
  Sender: FDA-Public Use
  Company Number: A0627033A

PATIENT
  Age: 34 Year
  Sex: Female

DRUGS (2)
  1. WELLBUTRIN XL [Suspect]
     Indication: PANIC DISORDER
     Dosage: 300MG PER DAY
     Route: 048
     Dates: start: 20061031, end: 20061106
  2. NO CONCURRENT MEDICATION [Concomitant]

REACTIONS (9)
  - ANOREXIA [None]
  - ANXIETY [None]
  - DIZZINESS [None]
  - INSOMNIA [None]
  - MIGRAINE [None]
  - NAUSEA [None]
  - PANIC ATTACK [None]
  - PARAESTHESIA [None]
  - TREMOR [None]
